FAERS Safety Report 15737164 (Version 4)
Quarter: 2019Q4

REPORT INFORMATION
  Report Type: Spontaneous
  Country: US (occurrence: US)
  Receive Date: 20181218
  Receipt Date: 20191203
  Transmission Date: 20200122
  Serious: No
  Sender: FDA-Public Use
  Company Number: US-SA-2018SA343022

PATIENT
  Age: 56 Year
  Sex: Female

DRUGS (5)
  1. AUBAGIO [Suspect]
     Active Substance: TERIFLUNOMIDE
     Dosage: 14 MG, QD
     Route: 048
     Dates: start: 201903
  2. AUBAGIO [Suspect]
     Active Substance: TERIFLUNOMIDE
     Indication: MULTIPLE SCLEROSIS
     Dosage: 14 MG, QD
     Route: 048
  3. MEDROL [Concomitant]
     Active Substance: METHYLPREDNISOLONE
     Dosage: UNK
     Dates: start: 201812
  4. VIT D [Concomitant]
     Active Substance: VITAMIN D NOS
     Dosage: 4000 IU, QD
  5. AUBAGIO [Suspect]
     Active Substance: TERIFLUNOMIDE
     Dosage: 14MG, QD
     Route: 048
     Dates: start: 20180928

REACTIONS (17)
  - Neck pain [Not Recovered/Not Resolved]
  - Musculoskeletal discomfort [Unknown]
  - Gait disturbance [Unknown]
  - Fatigue [Not Recovered/Not Resolved]
  - Dysphagia [Unknown]
  - Blood cholesterol increased [Unknown]
  - Fall [Unknown]
  - Bladder disorder [Unknown]
  - Spinal pain [Unknown]
  - Back pain [Unknown]
  - Micturition urgency [Unknown]
  - Arthralgia [Unknown]
  - Neuralgia [Unknown]
  - Visual field defect [Unknown]
  - Muscular weakness [Unknown]
  - Headache [Unknown]
  - Hypoaesthesia [Unknown]

NARRATIVE: CASE EVENT DATE: 2019
